FAERS Safety Report 4679023-3 (Version None)
Quarter: 2005Q2

REPORT INFORMATION
  Report Type: 
  Country: None (occurrence: None)
  Receive Date: 20050525
  Receipt Date: 20050201
  Transmission Date: 20051028
  Serious: No
  Sender: FDA-Public Use
  Company Number: 212178

PATIENT
  Age: 70 Year
  Sex: Female
  Weight: 63 kg

DRUGS (7)
  1. RAPTIVA [Suspect]
     Indication: PSORIASIS
     Dosage: 0.6 ML, 1/WEEK, SUBCUTANEOUS
     Route: 058
     Dates: start: 20050111
  2. RAPTIVA [Suspect]
     Indication: PSORIASIS
     Dosage: 0.6 ML, 1/WEEK, SUBCUTANEOUS
     Route: 058
     Dates: start: 20050128
  3. LAXATIVE (UNK INGREDIENTS) (LAXATIVES NOS) [Concomitant]
  4. ZOLOFT [Concomitant]
  5. COUMADIN [Concomitant]
  6. DIGOXIN [Concomitant]
  7. LASIX [Concomitant]

REACTIONS (4)
  - CHILLS [None]
  - HEADACHE [None]
  - OEDEMA PERIPHERAL [None]
  - PAIN [None]
